APPROVED DRUG PRODUCT: RESTASIS
Active Ingredient: CYCLOSPORINE
Strength: 0.05%
Dosage Form/Route: EMULSION;OPHTHALMIC
Application: N050790 | Product #001 | TE Code: AB
Applicant: ABBVIE INC
Approved: Dec 23, 2002 | RLD: Yes | RS: Yes | Type: RX